FAERS Safety Report 6837539-5 (Version None)
Quarter: 2010Q3

REPORT INFORMATION
  Report Type: 
  Country: None (occurrence: None)
  Receive Date: 20100707
  Receipt Date: 20100702
  Transmission Date: 20110219
  Serious: Yes (Life-Threatening, Hospitalization)
  Sender: FDA-Public Use
  Company Number: 2010SP036983

PATIENT
  Age: 24 Year
  Sex: Female

DRUGS (4)
  1. NUVARING [Suspect]
     Indication: CONTRACEPTION
     Dosage: 1 DF; VAG
     Route: 067
     Dates: start: 20090901
  2. ATARAX [Suspect]
     Indication: ANXIETY DISORDER
     Dosage: 12.25 MG; QD; PO
     Route: 048
     Dates: start: 20100320, end: 20100405
  3. FLUOXETINE [Suspect]
     Indication: ANXIETY DISORDER
     Dosage: 20 MG; QD; PO
     Route: 048
     Dates: start: 20100326, end: 20100406
  4. DOLIPRANE (PARACETAMOL /00020001/) [Suspect]
     Indication: HEADACHE
     Dosage: 1 GM; QD; PO
     Route: 048
     Dates: start: 20100403, end: 20100403

REACTIONS (4)
  - HEADACHE [None]
  - IDIOPATHIC THROMBOCYTOPENIC PURPURA [None]
  - SUICIDE ATTEMPT [None]
  - TREATMENT FAILURE [None]
